FAERS Safety Report 19647601 (Version 16)
Quarter: 2024Q4

REPORT INFORMATION
  Report Type: Spontaneous
  Country: US (occurrence: US)
  Receive Date: 20210802
  Receipt Date: 20241227
  Transmission Date: 20250114
  Serious: Yes (Other)
  Sender: PFIZER
  Company Number: US-PFIZER INC-2020393385

PATIENT
  Age: 73 Year
  Sex: Female

DRUGS (10)
  1. PREMARIN [Suspect]
     Active Substance: ESTROGENS, CONJUGATED
     Indication: Cystitis
     Dosage: UNK, 2X/WEEK
     Route: 067
  2. PREMARIN [Suspect]
     Active Substance: ESTROGENS, CONJUGATED
     Dosage: 0.5 G, 3 TIMES A WEEK
     Route: 067
     Dates: start: 20210827
  3. PREMARIN [Suspect]
     Active Substance: ESTROGENS, CONJUGATED
     Dosage: 0.5 G, 3 TIMES A WEEK
     Route: 067
     Dates: start: 20220112
  4. PREMARIN [Suspect]
     Active Substance: ESTROGENS, CONJUGATED
     Dosage: UNK, 2X/WEEK
     Dates: start: 20220101, end: 20221028
  5. PREMARIN [Suspect]
     Active Substance: ESTROGENS, CONJUGATED
     Dosage: 0.5 G, 2X/WEEK
     Route: 067
  6. PREMARIN [Suspect]
     Active Substance: ESTROGENS, CONJUGATED
     Dosage: UNK, 2X/WEEK
  7. PREMARIN [Suspect]
     Active Substance: ESTROGENS, CONJUGATED
     Dosage: 0.5 MG 2X/WK
     Route: 067
  8. CLINDAMYCIN HYDROCHLORIDE [Concomitant]
     Active Substance: CLINDAMYCIN HYDROCHLORIDE
     Dosage: 300 MG
     Route: 048
  9. CLINDAMYCIN HYDROCHLORIDE [Concomitant]
     Active Substance: CLINDAMYCIN HYDROCHLORIDE
     Dosage: 600 MG
     Dates: start: 20220101, end: 20221028
  10. LEVOTHYROXINE [Concomitant]
     Active Substance: LEVOTHYROXINE
     Dosage: 25 MG, 1X/DAY
     Dates: start: 20220101, end: 20221028

REACTIONS (7)
  - Cataract [Unknown]
  - Cerebrovascular accident [Unknown]
  - Cardiac operation [Unknown]
  - Malaise [Unknown]
  - Illness [Unknown]
  - Off label use [Unknown]
  - Product prescribing error [Unknown]
